FAERS Safety Report 21714409 (Version 1)
Quarter: 2022Q4

REPORT INFORMATION
  Report Type: Spontaneous
  Country: US (occurrence: US)
  Receive Date: 20221212
  Receipt Date: 20221212
  Transmission Date: 20230113
  Serious: No
  Sender: FDA-Public Use
  Company Number: US-MLMSERVICE-20220920-3805837-1

PATIENT
  Age: 20 Year
  Sex: Male

DRUGS (4)
  1. METRONIDAZOLE [Concomitant]
     Active Substance: METRONIDAZOLE
     Indication: Perioral dermatitis
  2. DOXYCYCLINE [Concomitant]
     Active Substance: DOXYCYCLINE
     Indication: Perioral dermatitis
     Route: 048
  3. TACROLIMUS [Suspect]
     Active Substance: TACROLIMUS
     Indication: Perioral dermatitis
     Route: 003
  4. TACROLIMUS [Suspect]
     Active Substance: TACROLIMUS
     Indication: Perioral dermatitis
     Route: 003

REACTIONS (1)
  - Alcohol intolerance [Recovered/Resolved]
